FAERS Safety Report 13945649 (Version 2)
Quarter: 2017Q4

REPORT INFORMATION
  Report Type: Spontaneous
  Country: US (occurrence: US)
  Receive Date: 20170907
  Receipt Date: 20171024
  Transmission Date: 20180320
  Serious: Yes (Other)
  Sender: FDA-Public Use
  Company Number: US-PFIZER INC-2017387141

PATIENT
  Age: 64 Year
  Sex: Male
  Weight: 70.31 kg

DRUGS (4)
  1. RAPAFLO [Concomitant]
     Active Substance: SILODOSIN
     Indication: BENIGN PROSTATIC HYPERPLASIA
     Dosage: 4 MG, UNK
     Dates: start: 20160801, end: 20170820
  2. ASPIRIN 81 [Concomitant]
     Active Substance: ASPIRIN
     Dosage: 81 MG, DAILY
  3. LIPITOR [Suspect]
     Active Substance: ATORVASTATIN CALCIUM
     Indication: BLOOD CHOLESTEROL INCREASED
     Dosage: 10 MG, 1X/DAY
     Route: 048
     Dates: start: 2003
  4. RAPAFLO [Concomitant]
     Active Substance: SILODOSIN
     Indication: PROSTATOMEGALY
     Dosage: 4 MG, 1X/DAY
     Route: 048
     Dates: start: 201703

REACTIONS (1)
  - Atrial fibrillation [Recovering/Resolving]

NARRATIVE: CASE EVENT DATE: 20170801
